FAERS Safety Report 5736886-8 (Version None)
Quarter: 2008Q2

REPORT INFORMATION
  Report Type: 
  Country: None (occurrence: None)
  Receive Date: 20080508
  Receipt Date: 20080423
  Transmission Date: 20081010
  Serious: Yes (Hospitalization)
  Sender: FDA-Public Use
  Company Number: 2008000751

PATIENT
  Age: 40 Year
  Sex: Male

DRUGS (8)
  1. ERLOTINIB (ERLOTINIB HCL) (TABLET) (ERLOTINIB HCL) [Suspect]
     Indication: PANCREATIC CARCINOMA METASTATIC
     Dosage: (100 MG, QD), ORAL
     Route: 048
     Dates: start: 20080101, end: 20080118
  2. CAPECITABINE (CAPECITABINE) [Suspect]
     Indication: PANCREATIC CARCINOMA METASTATIC
     Dosage: (300 MG, BID), ORAL
     Route: 048
     Dates: start: 20080201, end: 20080318
  3. GEMCITABINE [Suspect]
     Indication: PANCREATIC CARCINOMA METASTATIC
     Dosage: (2070 MCG), INTRAVENOUS
     Route: 042
     Dates: start: 20080201, end: 20080312
  4. PYRIDOXINE (PYRIDOXINE) [Concomitant]
  5. RAMOSETRON [Concomitant]
  6. NOVOLIN N [Concomitant]
  7. METOCLOPRAMIDE (METOCLOPRAMIDE) [Concomitant]
  8. OXYCODONE HCL [Concomitant]

REACTIONS (11)
  - CHEST DISCOMFORT [None]
  - CHOLANGITIS [None]
  - DYSPNOEA [None]
  - FEBRILE NEUTROPENIA [None]
  - HEPATITIS [None]
  - LYMPHOCYTE COUNT DECREASED [None]
  - MONOCYTE COUNT DECREASED [None]
  - NIGHT SWEATS [None]
  - PLATELET COUNT DECREASED [None]
  - RED BLOOD CELL COUNT DECREASED [None]
  - WHITE BLOOD CELL COUNT DECREASED [None]
